FAERS Safety Report 20032428 (Version 1)
Quarter: 2021Q4

REPORT INFORMATION
  Report Type: Spontaneous
  Country: ES (occurrence: ES)
  Receive Date: 20211103
  Receipt Date: 20211103
  Transmission Date: 20220303
  Serious: Yes (Other)
  Sender: FDA-Public Use
  Company Number: ES-TAKEDA-2021TUS067997

PATIENT
  Age: 11 Year
  Sex: Male

DRUGS (5)
  1. INTUNIV [Suspect]
     Active Substance: GUANFACINE HYDROCHLORIDE
     Indication: Disturbance in social behaviour
     Dosage: 1 MILLIGRAM, QD
     Route: 048
     Dates: start: 20210514, end: 20210520
  2. FLUTICASONE FUROATE [Concomitant]
     Active Substance: FLUTICASONE FUROATE
     Dosage: 27.5 MICROGRAM, QD
     Route: 045
     Dates: start: 20200612
  3. RISPERIDONA CINFA [Concomitant]
     Dosage: 1 MILLIGRAM, QD
     Route: 048
     Dates: start: 20210514
  4. CLORAZEPATE DIPOTASSIUM [Concomitant]
     Active Substance: CLORAZEPATE DIPOTASSIUM
     Dosage: 2.5 MILLIGRAM, Q12H
     Route: 048
     Dates: start: 20210514
  5. BUDESONIDE [Concomitant]
     Active Substance: BUDESONIDE
     Dosage: 200 MICROGRAM, Q12H
     Route: 050
     Dates: start: 20201030

REACTIONS (3)
  - Angioedema [Recovered/Resolved]
  - Urticaria [Recovered/Resolved]
  - Abdominal pain upper [Recovered/Resolved]

NARRATIVE: CASE EVENT DATE: 20210515
